FAERS Safety Report 22647115 (Version 2)
Quarter: 2023Q4

REPORT INFORMATION
  Report Type: Spontaneous
  Country: US (occurrence: US)
  Receive Date: 20230627
  Receipt Date: 20231025
  Transmission Date: 20240109
  Serious: Yes (Other)
  Sender: FDA-Public Use
  Company Number: US-BRISTOL-MYERS SQUIBB COMPANY-2023-089538

PATIENT
  Age: 81 Year
  Sex: Male
  Weight: 83.91 kg

DRUGS (3)
  1. REVLIMID [Suspect]
     Active Substance: LENALIDOMIDE
     Indication: Plasma cell myeloma
     Dosage: FREQ: DAILY FOR 21DAYS
     Route: 048
     Dates: start: 20221201
  2. REVLIMID [Suspect]
     Active Substance: LENALIDOMIDE
     Dosage: FREQ: 21 DAYS ON AND 7 DAYS OFF
     Route: 048
  3. REVLIMID [Suspect]
     Active Substance: LENALIDOMIDE

REACTIONS (4)
  - Urinary tract infection [Unknown]
  - Leukopenia [Recovering/Resolving]
  - Rash pruritic [Recovered/Resolved]
  - Pruritus [Recovering/Resolving]
